FAERS Safety Report 5888119-X (Version None)
Quarter: 2008Q3

REPORT INFORMATION
  Report Type: 
  Country: None (occurrence: None)
  Receive Date: 20080916
  Receipt Date: 20080916
  Transmission Date: 20090109
  Serious: Yes (Hospitalization)
  Sender: FDA-Public Use
  Company Number: None

PATIENT
  Age: 79 Year
  Sex: Male
  Weight: 89.81 kg

DRUGS (2)
  1. LISINOPRIL [Suspect]
     Indication: CARDIAC FAILURE
     Dosage: 40 MG DAILY PO
     Route: 048
  2. LISINOPRIL [Suspect]
     Indication: HYPERTENSION
     Dosage: 40 MG DAILY PO
     Route: 048

REACTIONS (1)
  - ANGIOEDEMA [None]
